FAERS Safety Report 24467546 (Version 1)
Quarter: 2024Q4

REPORT INFORMATION
  Report Type: Report from Study
  Country: US (occurrence: US)
  Receive Date: 20241018
  Receipt Date: 20241018
  Transmission Date: 20250114
  Serious: No
  Sender: ROCHE
  Company Number: US-ROCHE-3574781

PATIENT
  Age: 74 Year
  Sex: Female
  Weight: 68.95 kg

DRUGS (11)
  1. XOLAIR [Suspect]
     Active Substance: OMALIZUMAB
     Indication: Urticaria
     Dosage: 1 SHOT IN BOTH ARMS.
     Route: 058
     Dates: start: 202404
  2. XOLAIR [Suspect]
     Active Substance: OMALIZUMAB
     Indication: Urticaria
     Route: 058
  3. LEVOTHYROXINE [Concomitant]
     Active Substance: LEVOTHYROXINE
  4. METOPROLOL [Concomitant]
     Active Substance: METOPROLOL
  5. LOSARTAN [Concomitant]
     Active Substance: LOSARTAN
  6. HYDROCHLOROTHIAZIDE [Concomitant]
     Active Substance: HYDROCHLOROTHIAZIDE
  7. OMEPRAZOLE [Concomitant]
     Active Substance: OMEPRAZOLE
  8. ASPIRIN [Concomitant]
     Active Substance: ASPIRIN
  9. XANAX [Concomitant]
     Active Substance: ALPRAZOLAM
  10. CYCLOBENZAPRINE [Concomitant]
     Active Substance: CYCLOBENZAPRINE
  11. ZINC [Concomitant]
     Active Substance: ZINC

REACTIONS (1)
  - Urticaria [Not Recovered/Not Resolved]

NARRATIVE: CASE EVENT DATE: 20240530
